FAERS Safety Report 15742990 (Version 2)
Quarter: 2018Q4

REPORT INFORMATION
  Report Type: Spontaneous
  Country: US (occurrence: US)
  Receive Date: 20181220
  Receipt Date: 20181228
  Transmission Date: 20190205
  Serious: Yes (Other)
  Sender: FDA-Public Use
  Company Number: US-TEVA-2018-US-989222

PATIENT
  Age: 10 Year
  Sex: Female

DRUGS (1)
  1. METHYLPREDNISOLONE. [Suspect]
     Active Substance: METHYLPREDNISOLONE
     Indication: OBLITERATIVE BRONCHIOLITIS
     Dosage: WEEKLY ADMINISTRATION
     Route: 050

REACTIONS (2)
  - Drug hypersensitivity [Recovered/Resolved]
  - Anaphylactic reaction [Recovered/Resolved]
